FAERS Safety Report 22608718 (Version 1)
Quarter: 2023Q2

REPORT INFORMATION
  Report Type: Spontaneous
  Country: RU (occurrence: RU)
  Receive Date: 20230616
  Receipt Date: 20230616
  Transmission Date: 20230722
  Serious: Yes (Other)
  Sender: FDA-Public Use
  Company Number: RU-ABBVIE-5293038

PATIENT
  Age: 10 Year
  Weight: 27 kg

DRUGS (2)
  1. LOPINAVIR\RITONAVIR [Suspect]
     Active Substance: LOPINAVIR\RITONAVIR
     Indication: HIV infection
     Route: 048
     Dates: start: 20140127, end: 20190826
  2. DIDANOSINE [Concomitant]
     Active Substance: DIDANOSINE
     Indication: HIV infection
     Route: 048
     Dates: end: 20190826

REACTIONS (1)
  - Dyslipidaemia [Recovering/Resolving]

NARRATIVE: CASE EVENT DATE: 20140224
